FAERS Safety Report 17894165 (Version 2)
Quarter: 2020Q2

REPORT INFORMATION
  Report Type: Report from Study
  Country: IT (occurrence: IT)
  Receive Date: 20200615
  Receipt Date: 20200625
  Transmission Date: 20200714
  Serious: Yes (Death, Hospitalization)
  Sender: FDA-Public Use
  Company Number: IT-ROCHE-2621085

PATIENT
  Age: 55 Year
  Sex: Male

DRUGS (8)
  1. PREDNISONE. [Concomitant]
     Active Substance: PREDNISONE
     Route: 048
     Dates: start: 20200420
  2. METHYLPREDNISOLONE. [Concomitant]
     Active Substance: METHYLPREDNISOLONE
     Indication: HEPATITIS
     Route: 042
     Dates: start: 20200330, end: 20200330
  3. COBIMETINIB. [Suspect]
     Active Substance: COBIMETINIB
     Indication: MALIGNANT MELANOMA
     Dosage: THE DATE OF MOST RECENT DOSE OF COBIMETINIB (60 MG) PRIOR TO SAE (SERIOUS ADVERSE EVENT): 14/MAY/202
     Route: 048
     Dates: start: 20200217
  4. VEMURAFENIB. [Suspect]
     Active Substance: VEMURAFENIB
     Indication: MALIGNANT MELANOMA
     Dosage: THE DATE OF MOST RECENT DOSE OF VEMURAFENIB (720 MG) PRIOR TO SAE (SERIOUS ADVERSE EVENT): 14/MAY/20
     Route: 048
     Dates: start: 20200217
  5. OMEPRAZOLE. [Concomitant]
     Active Substance: OMEPRAZOLE
     Indication: HEPATITIS
     Route: 042
     Dates: start: 20200330, end: 20200415
  6. PREDNISONE. [Concomitant]
     Active Substance: PREDNISONE
     Indication: HEPATITIS
     Route: 048
     Dates: start: 20200416, end: 20200419
  7. ATEZOLIZUMAB. [Suspect]
     Active Substance: ATEZOLIZUMAB
     Indication: MALIGNANT MELANOMA
     Dosage: THE DATE OF MOST RECENT DOSE OF ATEZOLIZUMAB (840 MG) PRIOR TO SAE (SERIOUS ADVERSE EVENT): 16/MAR/2
     Route: 041
     Dates: start: 20200316
  8. METHYLPREDNISOLONE. [Concomitant]
     Active Substance: METHYLPREDNISOLONE
     Route: 042
     Dates: start: 20200331, end: 20200415

REACTIONS (1)
  - Seizure [Fatal]

NARRATIVE: CASE EVENT DATE: 20200515
